FAERS Safety Report 10480825 (Version 1)
Quarter: 2014Q3

REPORT INFORMATION
  Report Type: Spontaneous
  Country: US (occurrence: US)
  Receive Date: 20140929
  Receipt Date: 20140929
  Transmission Date: 20150326
  Serious: Yes (Other)
  Sender: FDA-Public Use
  Company Number: US-BAYER-2014-139264

PATIENT
  Sex: Female
  Weight: 1.58 kg

DRUGS (12)
  1. LABETALOL [Concomitant]
     Active Substance: LABETALOL\LABETALOL HYDROCHLORIDE
     Route: 015
  2. NIFEDIPINE. [Suspect]
     Active Substance: NIFEDIPINE
     Route: 015
  3. NIFEDIPINE. [Suspect]
     Active Substance: NIFEDIPINE
     Route: 015
  4. HYDRALAZINE [Concomitant]
     Active Substance: HYDRALAZINE HYDROCHLORIDE
     Route: 015
  5. MULTIVITAMIN [Concomitant]
     Active Substance: VITAMINS
     Route: 015
  6. LABETALOL [Concomitant]
     Active Substance: LABETALOL\LABETALOL HYDROCHLORIDE
     Route: 015
  7. HYDRALAZINE [Concomitant]
     Active Substance: HYDRALAZINE HYDROCHLORIDE
     Route: 015
  8. ERYTHROPOIETIN [Concomitant]
     Active Substance: ERYTHROPOIETIN
     Route: 015
  9. ERYTHROPOIETIN [Concomitant]
     Active Substance: ERYTHROPOIETIN
     Route: 015
  10. VITAMIN D [Concomitant]
     Active Substance: CHOLECALCIFEROL
     Route: 015
  11. MULTIVITAMIN [Concomitant]
     Active Substance: VITAMINS
     Route: 015
  12. VITAMIN D [Concomitant]
     Active Substance: CHOLECALCIFEROL
     Route: 015

REACTIONS (1)
  - Low birth weight baby [None]
